FAERS Safety Report 9414893 (Version 4)
Quarter: 2013Q4

REPORT INFORMATION
  Report Type: Spontaneous
  Country: US (occurrence: US)
  Receive Date: 20130723
  Receipt Date: 20131219
  Transmission Date: 20140711
  Serious: Yes (Death, Other)
  Sender: FDA-Public Use
  Company Number: US-JNJFOC-20120204274

PATIENT
  Age: 69 Year
  Sex: Female
  Weight: 45.36 kg

DRUGS (14)
  1. REMICADE [Suspect]
     Indication: RHEUMATOID ARTHRITIS
     Dosage: INFUSION START TO INFUSION STOP TIME WAS 180 MIN. THE SCHEDULED INFUSION WAS FOR 2 HOURS OR MORE.
     Route: 042
     Dates: end: 20121108
  2. REMICADE [Suspect]
     Indication: RHEUMATOID ARTHRITIS
     Route: 042
     Dates: start: 20070131
  3. REMICADE [Suspect]
     Indication: RHEUMATOID ARTHRITIS
     Route: 042
     Dates: start: 20120125
  4. BENADRYL [Concomitant]
     Indication: PREMEDICATION
     Route: 048
     Dates: start: 20120125
  5. TYLENOL [Concomitant]
     Indication: PREMEDICATION
     Route: 048
     Dates: start: 20120125
  6. BONIVA [Concomitant]
     Indication: OSTEOPOROSIS
     Route: 048
  7. NAMENDA [Concomitant]
     Indication: DEMENTIA ALZHEIMER^S TYPE
     Route: 048
  8. ARAVA [Concomitant]
     Indication: RHEUMATOID ARTHRITIS
     Route: 065
  9. CELEBREX [Concomitant]
     Indication: RHEUMATOID ARTHRITIS
     Route: 048
  10. PREDNISONE [Concomitant]
     Indication: RHEUMATOID ARTHRITIS
     Route: 065
  11. ARICEPT [Concomitant]
     Indication: DEMENTIA ALZHEIMER^S TYPE
     Route: 048
  12. CALCIUM AND VITAMIN D [Concomitant]
     Route: 065
  13. VIMPAT [Concomitant]
     Route: 048
  14. OXYBUTYNIN [Concomitant]
     Route: 048

REACTIONS (7)
  - Death [Fatal]
  - Weight decreased [Not Recovered/Not Resolved]
  - Dementia Alzheimer^s type [Not Recovered/Not Resolved]
  - Anxiety [Recovered/Resolved]
  - Infusion related reaction [Recovered/Resolved]
  - Pruritus [Recovered/Resolved]
  - Diarrhoea [Unknown]
